FAERS Safety Report 10205729 (Version 3)
Quarter: 2014Q2

REPORT INFORMATION
  Report Type: Report from Study
  Country: US (occurrence: US)
  Receive Date: 20140530
  Receipt Date: 20140616
  Transmission Date: 20141212
  Serious: Yes (Hospitalization)
  Sender: FDA-Public Use
  Company Number: US-ROCHE-1321123

PATIENT
  Age: 59 Year
  Sex: Female

DRUGS (2)
  1. XELODA [Suspect]
     Indication: BREAST CANCER
     Dosage: 14 DAYS ON/ 7 DAYS OFF
     Route: 048
     Dates: start: 20131011
  2. XELODA [Suspect]
     Indication: METASTASES TO NERVOUS SYSTEM

REACTIONS (10)
  - Diarrhoea [Unknown]
  - Incontinence [Unknown]
  - Influenza like illness [Not Recovered/Not Resolved]
  - Amnesia [Unknown]
  - Personality change [Unknown]
  - Dehydration [Unknown]
  - Asthenia [Unknown]
  - Incoherent [Unknown]
  - Erythema [Unknown]
  - Pain in extremity [Unknown]
